FAERS Safety Report 19873541 (Version 1)
Quarter: 2021Q3

REPORT INFORMATION
  Report Type: Spontaneous
  Country: CN (occurrence: CN)
  Receive Date: 20210923
  Receipt Date: 20210923
  Transmission Date: 20211014
  Serious: Yes (Life-Threatening)
  Sender: FDA-Public Use
  Company Number: CN-PFIZER INC-202101192461

PATIENT
  Age: 13 Year
  Sex: Male
  Weight: 31.6 kg

DRUGS (4)
  1. XI AI KE [Suspect]
     Active Substance: VINDESINE SULFATE
     Indication: ACUTE LYMPHOCYTIC LEUKAEMIA
     Dosage: 3.24 MG, EVERY 7 DAYS 0.9% SODIUM CHLORIDE INJECTION 50 ML
     Route: 041
     Dates: start: 20210722, end: 20210722
  2. XI AI KE [Suspect]
     Active Substance: VINDESINE SULFATE
     Dosage: 3.24 MG, EVERY 7 DAYS 0.9% SODIUM CHLORIDE INJECTION 50 ML
     Route: 041
     Dates: start: 20210729, end: 20210729
  3. PHARMORUBICIN [Suspect]
     Active Substance: EPIRUBICIN
     Indication: ACUTE LYMPHOCYTIC LEUKAEMIA
     Dosage: 32.4 MG, 1X/DAY PLUS 0.9% SODIUM CHLORIDE INJECTION 250 ML GREATER THAN 3H)
     Route: 041
     Dates: start: 20210722, end: 20210723
  4. PEGASPARGASE [Suspect]
     Active Substance: PEGASPARGASE
     Indication: ACUTE LYMPHOCYTIC LEUKAEMIA
     Dosage: 2700 IU, 1X/DAY
     Route: 030
     Dates: start: 20210722, end: 20210722

REACTIONS (1)
  - Myelosuppression [Recovering/Resolving]

NARRATIVE: CASE EVENT DATE: 20210803
